FAERS Safety Report 6543066-5 (Version None)
Quarter: 2010Q1

REPORT INFORMATION
  Report Type: 
  Country: None (occurrence: None)
  Receive Date: 20100120
  Receipt Date: 20100113
  Transmission Date: 20100710
  Serious: Yes (Death)
  Sender: FDA-Public Use
  Company Number: JP-BAYER-200914277BYL

PATIENT
  Age: 78 Year
  Sex: Male

DRUGS (21)
  1. CIPROXAN [Suspect]
     Indication: PYREXIA
     Route: 065
     Dates: start: 20090805, end: 20090812
  2. PENMALIN [Suspect]
     Indication: PYREXIA
     Route: 065
     Dates: start: 20090731, end: 20090804
  3. OMEGACIN [Suspect]
     Indication: PYREXIA
     Route: 065
     Dates: start: 20090812, end: 20090817
  4. PIRESPA [Concomitant]
     Indication: IDIOPATHIC PULMONARY FIBROSIS
     Dosage: TOTAL DAILY DOSE: 1800 MG
     Route: 048
     Dates: start: 20090529, end: 20090818
  5. PIRESPA [Concomitant]
     Dosage: TOTAL DAILY DOSE: 1200 MG
     Route: 048
     Dates: start: 20090501, end: 20090528
  6. PIRESPA [Concomitant]
     Dosage: TOTAL DAILY DOSE: 600 MG
     Route: 048
     Dates: start: 20090416, end: 20090430
  7. NOVOLIN R [Concomitant]
     Route: 065
  8. NOVORAPID [Concomitant]
     Route: 058
  9. ASPIRIN [Concomitant]
     Route: 048
  10. HARNAL D [Concomitant]
     Route: 048
  11. HALCION [Concomitant]
     Route: 048
  12. EURODIN [Concomitant]
     Route: 048
  13. VITANEURIN [Concomitant]
     Route: 048
  14. GASCON [Concomitant]
     Route: 048
  15. GASMOTIN [Concomitant]
     Route: 048
  16. BESACOLIN [Concomitant]
     Route: 048
  17. SHINLUCK [Concomitant]
     Route: 048
  18. DEPAS [Concomitant]
     Route: 048
  19. MIYA BM [Concomitant]
     Route: 048
  20. DAI-KENCHU-TO [Concomitant]
     Route: 048
  21. PREDNISOLONE [Concomitant]
     Route: 065
     Dates: start: 20090818

REACTIONS (2)
  - PSEUDOMEMBRANOUS COLITIS [None]
  - SEPSIS [None]
